FAERS Safety Report 9220747 (Version 2)
Quarter: 2013Q4

REPORT INFORMATION
  Report Type: Spontaneous
  Country: US (occurrence: US)
  Receive Date: 20130409
  Receipt Date: 20131017
  Transmission Date: 20140711
  Serious: Yes (Life-Threatening, Hospitalization, Other)
  Sender: FDA-Public Use
  Company Number: US-ELI_LILLY_AND_COMPANY-US201303009708

PATIENT
  Age: 61 Year
  Sex: Female

DRUGS (12)
  1. CYMBALTA [Suspect]
     Indication: DEPRESSION
     Dosage: 120 MG, QD
     Dates: start: 2009
  2. CYMBALTA [Suspect]
     Indication: DIABETIC NEUROPATHY
     Dosage: 60 MG, BID
     Route: 048
     Dates: start: 2011
  3. CYMBALTA [Suspect]
     Dosage: 90 MG, QD
  4. CYMBALTA [Suspect]
     Dosage: 60 MG, QD
     Dates: start: 20131002
  5. CYMBALTA [Suspect]
     Dosage: 90 MG, QD
     Dates: start: 20131005
  6. HUMALOG [Concomitant]
  7. PLAVIX [Concomitant]
     Dosage: 75 MG, UNKNOWN
  8. TOPROL [Concomitant]
     Dosage: 100 MG, UNKNOWN
  9. LISINOPRIL [Concomitant]
     Dosage: 20 MG, UNKNOWN
  10. ASPIRIN [Concomitant]
  11. NORVASC [Concomitant]
  12. XANAX [Concomitant]

REACTIONS (24)
  - Paraesthesia [Unknown]
  - Eating disorder [Unknown]
  - Dry mouth [Unknown]
  - Nervousness [Unknown]
  - Dizziness [Not Recovered/Not Resolved]
  - Nausea [Not Recovered/Not Resolved]
  - Hyperhidrosis [Unknown]
  - Irritability [Unknown]
  - Sleep terror [Unknown]
  - Dysarthria [Unknown]
  - Drug withdrawal syndrome [Not Recovered/Not Resolved]
  - Gastrooesophageal reflux disease [Unknown]
  - Diabetes mellitus [Not Recovered/Not Resolved]
  - Hypoglycaemia [Unknown]
  - Blister [Unknown]
  - Loss of consciousness [Unknown]
  - Road traffic accident [Unknown]
  - Paraesthesia [Not Recovered/Not Resolved]
  - Suicidal ideation [Unknown]
  - Violence-related symptom [Unknown]
  - Skin lesion [Not Recovered/Not Resolved]
  - Pain [Unknown]
  - Drug ineffective [Unknown]
  - Gait disturbance [Not Recovered/Not Resolved]
